FAERS Safety Report 24997489 (Version 1)
Quarter: 2025Q1

REPORT INFORMATION
  Report Type: Spontaneous
  Country: FR (occurrence: FR)
  Receive Date: 20250222
  Receipt Date: 20250222
  Transmission Date: 20250409
  Serious: Yes (Life-Threatening, Hospitalization)
  Sender: ROCHE
  Company Number: None

PATIENT
  Age: 15 Year
  Sex: Female
  Weight: 45 kg

DRUGS (3)
  1. MABTHERA [Suspect]
     Active Substance: RITUXIMAB
     Indication: Myelitis transverse
     Route: 040
     Dates: start: 20231219, end: 20231219
  2. MABTHERA [Suspect]
     Active Substance: RITUXIMAB
     Route: 040
     Dates: start: 20240108, end: 20240108
  3. MABTHERA [Suspect]
     Active Substance: RITUXIMAB
     Route: 040
     Dates: start: 20240603, end: 20240617

REACTIONS (3)
  - Meningitis streptococcal [Recovered/Resolved]
  - Acute sinusitis [Recovered/Resolved]
  - Cavernous sinus thrombosis [Recovered/Resolved]

NARRATIVE: CASE EVENT DATE: 20250109
